FAERS Safety Report 4720845-8 (Version None)
Quarter: 2005Q3

REPORT INFORMATION
  Report Type: 
  Country: None (occurrence: None)
  Receive Date: 20050721
  Receipt Date: 20050715
  Transmission Date: 20060218
  Serious: Yes (Other)
  Sender: FDA-Public Use
  Company Number: 200516455GDDC

PATIENT
  Age: 34 Year
  Sex: Female

DRUGS (5)
  1. FEXOFENADINE HCL [Suspect]
     Indication: SEASONAL ALLERGY
     Route: 048
     Dates: start: 20050620, end: 20050629
  2. CETIRIZINE HCL [Concomitant]
     Indication: SEASONAL ALLERGY
     Route: 048
     Dates: start: 19970101
  3. BECONASE [Concomitant]
     Route: 045
     Dates: start: 19990101
  4. ACETAMINOPHEN W/ CODEINE [Concomitant]
     Indication: BACK PAIN
     Dosage: DOSE: 2 QDS
     Route: 048
     Dates: start: 19970101
  5. NEDOCROMIL SODIUM [Concomitant]
     Route: 047
     Dates: start: 20040101

REACTIONS (3)
  - COUGH [None]
  - OEDEMA PERIPHERAL [None]
  - WHEEZING [None]
